FAERS Safety Report 6430929-4 (Version None)
Quarter: 2009Q4

REPORT INFORMATION
  Report Type: 
  Country: None (occurrence: None)
  Receive Date: 20091106
  Receipt Date: 20091030
  Transmission Date: 20100525
  Serious: Yes (Other)
  Sender: FDA-Public Use
  Company Number: JP-AVENTIS-200911804JP

PATIENT
  Age: 73 Year
  Sex: Male
  Weight: 75 kg

DRUGS (6)
  1. ENOXAPARIN SODIUM [Suspect]
     Route: 058
     Dates: start: 20090109, end: 20090122
  2. LOXONIN                            /00890701/ [Suspect]
  3. SELBEX [Suspect]
  4. BLOPRESS [Concomitant]
     Indication: HYPERTENSION
     Route: 048
  5. ALLEGRA [Concomitant]
     Route: 048
  6. THYRADIN [Concomitant]
     Indication: THYROID DISORDER
     Route: 048

REACTIONS (1)
  - HEPATIC FUNCTION ABNORMAL [None]
